FAERS Safety Report 21477893 (Version 4)
Quarter: 2022Q4

REPORT INFORMATION
  Report Type: Spontaneous
  Country: US (occurrence: US)
  Receive Date: 20221019
  Receipt Date: 20221103
  Transmission Date: 20230113
  Serious: Yes (Hospitalization, Other)
  Sender: FDA-Public Use
  Company Number: US-GSK-US2022AMR149736

PATIENT

DRUGS (4)
  1. FLOLAN [Suspect]
     Active Substance: EPOPROSTENOL SODIUM
     Indication: Pulmonary arterial hypertension
     Dosage: 29 NG/KG/MIN, PUMP RATE: 81 ML/DAY, VIAL STRENGTH: 1.5 MG
     Dates: start: 20201229
  2. GLYCINE\MANNITOL\SODIUM CHLORIDE [Suspect]
     Active Substance: GLYCINE\MANNITOL\SODIUM CHLORIDE
     Indication: Vehicle solution use
     Dosage: UNK
     Dates: start: 20201229
  3. FLOLAN [Suspect]
     Active Substance: EPOPROSTENOL SODIUM
     Indication: Pulmonary arterial hypertension
     Dosage: 29 NG/KG/MIN, PUMP RATE: 81 ML/DAY, VIAL STRENGTH: 1.5 MG
     Dates: start: 20201229
  4. ADEMPAS [Concomitant]
     Active Substance: RIOCIGUAT
     Indication: Product used for unknown indication
     Dosage: UNK

REACTIONS (4)
  - Cellulitis [Unknown]
  - Vascular device infection [Unknown]
  - Emergency care [Unknown]
  - Central venous catheterisation [Unknown]
